FAERS Safety Report 5110879-6 (Version None)
Quarter: 2006Q3

REPORT INFORMATION
  Report Type: 
  Country: None (occurrence: None)
  Receive Date: 20060919
  Receipt Date: 20060914
  Transmission Date: 20061208
  Serious: Yes (Hospitalization)
  Sender: FDA-Public Use
  Company Number: THQ2006A00486

PATIENT
  Age: 71 Year
  Sex: Male

DRUGS (7)
  1. LEUPROLIDE ACETATE [Suspect]
     Indication: PROSTATE CANCER
     Dosage: 22.5 MG (22.5 MG, 1 IN 3 M) INJECTION
     Dates: start: 20051220, end: 20060320
  2. ZOLEDRONIC ACID [Concomitant]
  3. LISINOPRIL [Concomitant]
  4. PRAZOSIN HCL [Concomitant]
  5. LOVASTATIN [Concomitant]
  6. PROPRANOLOL HYDROCHLORIDE [Concomitant]
  7. PAROXETINE [Concomitant]

REACTIONS (2)
  - RENAL FAILURE ACUTE [None]
  - VIRAL INFECTION [None]
